FAERS Safety Report 8455063-3 (Version None)
Quarter: 2012Q2

REPORT INFORMATION
  Report Type: 
  Country: None (occurrence: None)
  Receive Date: 20120615
  Receipt Date: 20120615
  Transmission Date: 20120825
  Serious: Yes (Other)
  Sender: FDA-Public Use
  Company Number: None

PATIENT
  Age: 75 Year
  Sex: Female
  Weight: 66.2705 kg

DRUGS (1)
  1. PROTONIX [Suspect]
     Dosage: 1 40 MG. TAB DAILY DAILY PO
     Route: 048
     Dates: start: 20120414, end: 20120514

REACTIONS (6)
  - IMPAIRED HEALING [None]
  - SWOLLEN TONGUE [None]
  - ORAL DISCOMFORT [None]
  - GINGIVAL SWELLING [None]
  - ORAL MUCOSAL ERYTHEMA [None]
  - DIABETES MELLITUS [None]
